FAERS Safety Report 4616885-X (Version None)
Quarter: 2005Q1

REPORT INFORMATION
  Report Type: 
  Country: None (occurrence: None)
  Receive Date: 20050321
  Receipt Date: 20030918
  Transmission Date: 20050727
  Serious: Yes (Death)
  Sender: FDA-Public Use
  Company Number: 6132

PATIENT
  Age: 73 Year
  Sex: Female

DRUGS (2)
  1. FLUOROURACIL [Suspect]
     Indication: COLORECTAL CANCER
     Dosage: 1700 MG/M2 PER_CYCLE IV
     Route: 042
  2. LEUCOVORIN [Suspect]
     Indication: COLORECTAL CANCER
     Dosage: 80 MG/M2 PER_CYCLE IV
     Route: 042

REACTIONS (7)
  - DIARRHOEA [None]
  - FEBRILE NEUTROPENIA [None]
  - HAEMATOTOXICITY [None]
  - HAEMOGLOBIN DECREASED [None]
  - MUCOSAL INFLAMMATION [None]
  - PULMONARY EMBOLISM [None]
  - SEPTIC SHOCK [None]
